FAERS Safety Report 21700060 (Version 5)
Quarter: 2024Q3

REPORT INFORMATION
  Report Type: Report from Study
  Country: DE (occurrence: DE)
  Receive Date: 20221208
  Receipt Date: 20240709
  Transmission Date: 20241016
  Serious: Yes (Hospitalization)
  Sender: ROCHE
  Company Number: DE-ROCHE-2469863

PATIENT
  Age: 55 Year
  Sex: Male

DRUGS (8)
  1. OCREVUS [Suspect]
     Active Substance: OCRELIZUMAB
     Indication: Relapsing-remitting multiple sclerosis
     Dosage: 600 MG FREQUENCY: 182 DAYS AND 189 DAYS
     Route: 042
     Dates: start: 20191025
  2. OCREVUS [Suspect]
     Active Substance: OCRELIZUMAB
     Route: 042
     Dates: start: 20200508
  3. OCREVUS [Suspect]
     Active Substance: OCRELIZUMAB
     Route: 042
     Dates: start: 20210702
  4. BACLOFEN [Concomitant]
     Active Substance: BACLOFEN
     Dosage: 1-0-1
  5. NABIXIMOLS [Concomitant]
     Active Substance: NABIXIMOLS
     Dosage: 2-6 PUFFS
  6. SPASMEX (GERMANY) [Concomitant]
  7. IBUPROFEN [Concomitant]
     Active Substance: IBUPROFEN
  8. PREGABALIN [Concomitant]
     Active Substance: PREGABALIN

REACTIONS (15)
  - Fatigue [Recovered/Resolved]
  - Muscle spasticity [Not Recovered/Not Resolved]
  - Back pain [Recovered/Resolved]
  - Pain in extremity [Not Recovered/Not Resolved]
  - Gait disturbance [Recovered/Resolved]
  - Chills [Recovered/Resolved]
  - Hot flush [Recovered/Resolved]
  - Somnolence [Recovered/Resolved]
  - Arthralgia [Recovered/Resolved]
  - Contusion [Recovered/Resolved]
  - Fall [Unknown]
  - Vertigo positional [Recovered/Resolved]
  - Nephrolithiasis [Recovered/Resolved]
  - COVID-19 [Recovered/Resolved]
  - Intervertebral disc protrusion [Recovered/Resolved]

NARRATIVE: CASE EVENT DATE: 20191025
